FAERS Safety Report 8165998-7 (Version None)
Quarter: 2012Q1

REPORT INFORMATION
  Report Type: 
  Country: None (occurrence: None)
  Receive Date: 20120227
  Receipt Date: 20110516
  Transmission Date: 20120608
  Serious: No
  Sender: FDA-Public Use
  Company Number: US-MYLANLABS-2011S1002082

PATIENT
  Age: 32 Year
  Sex: Female
  Weight: 54.43 kg

DRUGS (2)
  1. AMNESTEEM [Suspect]
  2. CLARAVIS [Suspect]
     Dates: start: 20101015, end: 20110119

REACTIONS (7)
  - BONE PAIN [None]
  - DRY SKIN [None]
  - RASH [None]
  - VISION BLURRED [None]
  - PHOTOPHOBIA [None]
  - ARTHRALGIA [None]
  - DERMATITIS [None]
